FAERS Safety Report 8809892 (Version 1)
Quarter: 2012Q4

REPORT INFORMATION
  Report Type: 
  Country: US (occurrence: US)
  Receive Date: 20120926
  Receipt Date: 20120926
  Transmission Date: 20130627
  Serious: Yes (Hospitalization)
  Sender: FDA-Public Use
  Company Number: US-MUTUAL PHARMACEUTICAL COMPANY, INC.-LVTM20120009

PATIENT
  Age: 45 Year
  Sex: Female

DRUGS (10)
  1. LEVETIRACETAM [Suspect]
     Indication: SEIZURE
     Route: 065
  2. METHIMAZOLE [Concomitant]
     Indication: HYPERTHYROIDISM
     Route: 065
  3. PROPOXYPHENE 100 MG/ACETAMINOPHEN 650 MG [Concomitant]
     Indication: PAIN
     Route: 065
  4. ALENDRONATE [Concomitant]
     Indication: DRUG USE FOR UNKNOWN INDICATION
     Route: 065
  5. PANTOPRAZOLE [Concomitant]
     Indication: DRUG USE FOR UNKNOWN INDICATION
     Route: 065
  6. REGULAR INSULIN [Concomitant]
     Indication: DRUG USE FOR UNKNOWN INDICATION
     Route: 065
  7. FEXOFENADINE [Concomitant]
     Indication: DRUG USE FOR UNKNOWN INDICATION
     Route: 065
  8. ATENOLOL [Concomitant]
     Indication: DRUG USE FOR UNKNOWN INDICATION
     Route: 065
  9. IPRATROPIUM-ALBUTEROL [Concomitant]
     Indication: DRUG USE FOR UNKNOWN INDICATION
  10. OXYGEN [Concomitant]
     Indication: DRUG USE FOR UNKNOWN INDICATION

REACTIONS (3)
  - Acute generalised exanthematous pustulosis [Recovered/Resolved]
  - Pain of skin [Unknown]
  - Pruritus [Recovering/Resolving]
